FAERS Safety Report 13082319 (Version 5)
Quarter: 2017Q1

REPORT INFORMATION
  Report Type: Spontaneous
  Country: US (occurrence: US)
  Receive Date: 20170103
  Receipt Date: 20170328
  Transmission Date: 20170428
  Serious: Yes (Hospitalization)
  Sender: FDA-Public Use
  Company Number: US-ACTELION-A-NJ2016-147635

PATIENT
  Age: 40 Year
  Sex: Female
  Weight: 102.4 kg

DRUGS (6)
  1. ADEMPAS [Concomitant]
     Active Substance: RIOCIGUAT
     Dosage: UNK
  2. WARFARIN [Concomitant]
     Active Substance: WARFARIN
  3. OPSUMIT [Suspect]
     Active Substance: MACITENTAN
     Indication: PULMONARY ARTERIAL HYPERTENSION
     Dosage: 10 MG, QD
     Route: 048
     Dates: start: 20160515
  4. REMODULIN [Suspect]
     Active Substance: TREPROSTINIL
     Indication: PULMONARY ARTERIAL HYPERTENSION
     Dosage: 0.062 NG/KG, PER MIN
     Route: 042
     Dates: start: 20120925
  5. DILTIAZEM. [Concomitant]
     Active Substance: DILTIAZEM
  6. XARELTO [Concomitant]
     Active Substance: RIVAROXABAN

REACTIONS (4)
  - Respiratory syncytial virus infection [Unknown]
  - Pyrexia [Unknown]
  - Respiratory failure [Unknown]
  - Fluid retention [Unknown]
